FAERS Safety Report 9797570 (Version 1)
Quarter: 2014Q1

REPORT INFORMATION
  Report Type: Spontaneous
  Country: US (occurrence: None)
  Receive Date: 20140102
  Receipt Date: 20140102
  Transmission Date: 20141002
  Serious: No
  Sender: FDA-Public Use
  Company Number: None

PATIENT
  Age: 69 Year
  Sex: Female
  Weight: 66.68 kg

DRUGS (1)
  1. LOVASTATIN [Suspect]
     Indication: HYPERTENSION
     Dosage: 1 PILL

REACTIONS (1)
  - Dizziness [None]
